FAERS Safety Report 23275149 (Version 1)
Quarter: 2023Q4

REPORT INFORMATION
  Report Type: Report from Study
  Country: CN (occurrence: CN)
  Receive Date: 20231208
  Receipt Date: 20231208
  Transmission Date: 20240110
  Serious: Yes (Other)
  Sender: FDA-Public Use
  Company Number: CN-JNJFOC-20231184191

PATIENT

DRUGS (1)
  1. RISPERDAL [Suspect]
     Active Substance: RISPERIDONE
     Indication: Schizophrenia
     Dosage: 1 MG/TIME, 1 TIME/D, WITH GRADUAL INCREASE IN DOSAGE STARTING ON DAY 2 TO MAXIMUM DOSAGE OF LESS THA
     Route: 048

REACTIONS (6)
  - Arrhythmia [Unknown]
  - Drug ineffective [Unknown]
  - Blood triglycerides increased [Unknown]
  - Blood cholesterol increased [Unknown]
  - Sinus tachycardia [Unknown]
  - Electrocardiogram abnormal [Unknown]
